FAERS Safety Report 20580565 (Version 2)
Quarter: 2022Q3

REPORT INFORMATION
  Report Type: Spontaneous
  Country: JP (occurrence: JP)
  Receive Date: 20220311
  Receipt Date: 20220906
  Transmission Date: 20221027
  Serious: Yes (Other)
  Sender: FDA-Public Use
  Company Number: JP-KYOWAKIRIN-2022AKK003223

PATIENT
  Age: 54 Year
  Sex: Female

DRUGS (285)
  1. ROMIPLOSTIM [Suspect]
     Active Substance: ROMIPLOSTIM
     Indication: Immune thrombocytopenia
     Dosage: UNK, QWK
     Route: 058
     Dates: start: 20211126, end: 20220204
  2. ROMIPLOSTIM [Suspect]
     Active Substance: ROMIPLOSTIM
     Dosage: 0.22VIAL
     Route: 058
     Dates: start: 20190725, end: 20190725
  3. ROMIPLOSTIM [Suspect]
     Active Substance: ROMIPLOSTIM
     Dosage: 0.41VIAL
     Route: 058
     Dates: start: 20190801, end: 20190801
  4. ROMIPLOSTIM [Suspect]
     Active Substance: ROMIPLOSTIM
     Dosage: UNK, QWK
     Route: 058
     Dates: start: 20190808, end: 20190816
  5. ROMIPLOSTIM [Suspect]
     Active Substance: ROMIPLOSTIM
     Dosage: UNK UNK, QWK
     Route: 058
     Dates: start: 20190823, end: 20190913
  6. ROMIPLOSTIM [Suspect]
     Active Substance: ROMIPLOSTIM
     Dosage: UNK UNK, QWK
     Route: 058
     Dates: start: 20190920, end: 20191101
  7. ROMIPLOSTIM [Suspect]
     Active Substance: ROMIPLOSTIM
     Dosage: UNK UNK, QWK
     Route: 058
     Dates: start: 20191108, end: 20191220
  8. ROMIPLOSTIM [Suspect]
     Active Substance: ROMIPLOSTIM
     Dosage: UNK UNK, QWK
     Route: 058
     Dates: start: 20191227, end: 20200612
  9. ROMIPLOSTIM [Suspect]
     Active Substance: ROMIPLOSTIM
     Dosage: UNK UNK, QWK
     Route: 058
     Dates: start: 20200619, end: 20210226
  10. ROMIPLOSTIM [Suspect]
     Active Substance: ROMIPLOSTIM
     Dosage: UNK UNK, QWK
     Route: 058
     Dates: start: 20210305, end: 20210507
  11. ROMIPLOSTIM [Suspect]
     Active Substance: ROMIPLOSTIM
     Dosage: UNK UNK, QWK
     Route: 058
     Dates: start: 20210514, end: 20210730
  12. ROMIPLOSTIM [Suspect]
     Active Substance: ROMIPLOSTIM
     Dosage: UNK UNK, QWK
     Route: 058
     Dates: start: 20210806, end: 20211029
  13. ROMIPLOSTIM [Suspect]
     Active Substance: ROMIPLOSTIM
     Dosage: UNK UNK, QWK
     Route: 058
     Dates: start: 20211105, end: 20211119
  14. ROMIPLOSTIM [Suspect]
     Active Substance: ROMIPLOSTIM
     Dosage: 1.8VIAL
     Route: 058
     Dates: start: 20220210, end: 20220210
  15. ROMIPLOSTIM [Suspect]
     Active Substance: ROMIPLOSTIM
     Dosage: 1.6VIAL
     Route: 058
     Dates: start: 20220218, end: 20220218
  16. ROMIPLOSTIM [Suspect]
     Active Substance: ROMIPLOSTIM
     Dosage: 1.4VIAL
     Route: 058
     Dates: start: 20220225, end: 20220225
  17. ROMIPLOSTIM [Suspect]
     Active Substance: ROMIPLOSTIM
     Dosage: 1.2VIAL
     Route: 058
     Dates: start: 20220304, end: 20220304
  18. ROMIPLOSTIM [Suspect]
     Active Substance: ROMIPLOSTIM
     Dosage: 1VIAL
     Route: 058
     Dates: start: 20220311, end: 20220311
  19. ROMIPLOSTIM [Suspect]
     Active Substance: ROMIPLOSTIM
     Dosage: 0.8VIAL
     Route: 058
     Dates: start: 20220318, end: 20220318
  20. ROMIPLOSTIM [Suspect]
     Active Substance: ROMIPLOSTIM
     Dosage: 0.6VIAL
     Route: 058
     Dates: start: 20220325, end: 20220325
  21. ROMIPLOSTIM [Suspect]
     Active Substance: ROMIPLOSTIM
     Dosage: 1VIAL
     Route: 058
     Dates: start: 20220401, end: 20220401
  22. ROMIPLOSTIM [Suspect]
     Active Substance: ROMIPLOSTIM
     Dosage: UNK UNK, QWK
     Route: 058
     Dates: start: 20220408
  23. DENOSUMAB [Concomitant]
     Active Substance: DENOSUMAB
     Indication: Product used for unknown indication
     Dosage: 1 TUBE
     Route: 058
     Dates: start: 20220304, end: 20220304
  24. DENOSUMAB [Concomitant]
     Active Substance: DENOSUMAB
     Dosage: 1 TUBE
     Route: 058
     Dates: start: 20191115, end: 20191115
  25. DENOSUMAB [Concomitant]
     Active Substance: DENOSUMAB
     Dosage: 1 TUBE
     Route: 058
     Dates: start: 20200717, end: 20200717
  26. DENOSUMAB [Concomitant]
     Active Substance: DENOSUMAB
     Dosage: 1 TUBE
     Route: 058
     Dates: start: 20210205, end: 20210205
  27. DENOSUMAB [Concomitant]
     Active Substance: DENOSUMAB
     Dosage: 1 TUBE
     Route: 058
     Dates: start: 20210813, end: 20210813
  28. PREDNISOLONE [Concomitant]
     Active Substance: PREDNISOLONE
     Indication: Immune thrombocytopenia
     Dosage: 20 MILLIGRAM, QD AFTER BREAKFAST
     Route: 065
     Dates: start: 20211015, end: 20220307
  29. PREDNISOLONE [Concomitant]
     Active Substance: PREDNISOLONE
     Dosage: 15 MILLIGRAM, BID AFTER BREAKFAST/LUNCH
     Route: 065
     Dates: start: 20190718, end: 20190808
  30. PREDNISOLONE [Concomitant]
     Active Substance: PREDNISOLONE
     Dosage: 30 MILLIGRAM, BID AFTER BREAKFAST/LUNCH
     Route: 065
     Dates: start: 20190809, end: 20190811
  31. PREDNISOLONE [Concomitant]
     Active Substance: PREDNISOLONE
     Dosage: 15 MILLIGRAM, BID AFTERBREAKFAST/LUNCH
     Route: 065
     Dates: start: 20190812, end: 20190813
  32. PREDNISOLONE [Concomitant]
     Active Substance: PREDNISOLONE
     Dosage: 10 MILLIGRAM, BID
     Route: 065
     Dates: start: 20190816, end: 20190822
  33. PREDNISOLONE [Concomitant]
     Active Substance: PREDNISOLONE
     Dosage: 15 MILLIGRAM, QD
     Route: 065
     Dates: start: 20190823, end: 20190829
  34. PREDNISOLONE [Concomitant]
     Active Substance: PREDNISOLONE
     Dosage: 10 MILLIGRAM, QD
     Route: 065
     Dates: start: 20190830, end: 20190926
  35. PREDNISOLONE [Concomitant]
     Active Substance: PREDNISOLONE
     Dosage: 5 MILLIGRAM, QD
     Route: 065
     Dates: start: 20190927, end: 20191003
  36. PREDNISOLONE [Concomitant]
     Active Substance: PREDNISOLONE
     Dosage: 3 MILLIGRAM, QD
     Route: 065
     Dates: start: 20191004, end: 20200716
  37. PREDNISOLONE [Concomitant]
     Active Substance: PREDNISOLONE
     Dosage: 4 MILLIGRAM, QD
     Route: 065
     Dates: start: 20200717, end: 20200813
  38. PREDNISOLONE [Concomitant]
     Active Substance: PREDNISOLONE
     Dosage: 5 MILLIGRAM, QD
     Route: 065
     Dates: start: 20200814, end: 20201203
  39. PREDNISOLONE [Concomitant]
     Active Substance: PREDNISOLONE
     Dosage: 20 MILLIGRAM, QD
     Route: 065
     Dates: start: 20201204, end: 20201217
  40. PREDNISOLONE [Concomitant]
     Active Substance: PREDNISOLONE
     Dosage: 15 MILLIGRAM, QD
     Route: 065
     Dates: start: 20201218, end: 20210204
  41. PREDNISOLONE [Concomitant]
     Active Substance: PREDNISOLONE
     Dosage: 20 MILLIGRAM, QD
     Route: 065
     Dates: start: 20210205, end: 20210318
  42. PREDNISOLONE [Concomitant]
     Active Substance: PREDNISOLONE
     Dosage: 15 MILLIGRAM, QD
     Route: 065
     Dates: start: 20210319, end: 20210603
  43. PREDNISOLONE [Concomitant]
     Active Substance: PREDNISOLONE
     Dosage: 10 MILLIGRAM, QD
     Route: 065
     Dates: start: 20210604, end: 20210701
  44. PREDNISOLONE [Concomitant]
     Active Substance: PREDNISOLONE
     Dosage: 12 MILLIGRAM, QD
     Route: 065
     Dates: start: 20210702, end: 20210805
  45. PREDNISOLONE [Concomitant]
     Active Substance: PREDNISOLONE
     Dosage: 10 MILLIGRAM, QD
     Route: 065
     Dates: start: 20210806, end: 20211014
  46. PREDNISOLONE [Concomitant]
     Active Substance: PREDNISOLONE
     Dosage: 40 MILLIGRAM, QD
     Route: 065
     Dates: start: 20220308, end: 20220318
  47. PREDNISOLONE [Concomitant]
     Active Substance: PREDNISOLONE
     Dosage: 60 MILLIGRAM, QD
     Route: 065
     Dates: start: 20220319, end: 20220323
  48. PREDNISOLONE [Concomitant]
     Active Substance: PREDNISOLONE
     Dosage: 40 MILLIGRAM, QD
     Route: 065
     Dates: start: 20220324, end: 20220324
  49. PREDNISOLONE [Concomitant]
     Active Substance: PREDNISOLONE
     Dosage: 20 MILLIGRAM, QD
     Route: 065
     Dates: start: 20220507, end: 20220509
  50. PREDNISOLONE [Concomitant]
     Active Substance: PREDNISOLONE
     Dosage: 40 MILLIGRAM, QD
     Route: 065
     Dates: start: 20220510, end: 20220517
  51. PREDNISOLONE [Concomitant]
     Active Substance: PREDNISOLONE
     Dosage: 20 MILLIGRAM, QD
     Route: 065
     Dates: start: 20220518, end: 20220526
  52. PREDNISOLONE [Concomitant]
     Active Substance: PREDNISOLONE
     Dosage: 15 MILLIGRAM, QD
     Route: 065
     Dates: start: 20220603, end: 20220630
  53. PREDNISOLONE [Concomitant]
     Active Substance: PREDNISOLONE
     Dosage: 20 MILLIGRAM, QD
     Route: 065
     Dates: start: 20210701, end: 20210714
  54. PREDNISOLONE [Concomitant]
     Active Substance: PREDNISOLONE
     Dosage: 15 MILLIGRAM, QD
     Route: 065
     Dates: start: 20210715, end: 20220822
  55. NEORAL [Concomitant]
     Active Substance: CYCLOSPORINE
     Indication: Immune thrombocytopenia
     Dosage: 125 MILLIGRAM, BID AFTER BREAKFAST/DINNER
     Route: 065
     Dates: start: 20211210, end: 20220209
  56. NEORAL [Concomitant]
     Active Substance: CYCLOSPORINE
     Dosage: 125 MILLIGRAM, BID AFTER BREAKFAST/DINNER
     Route: 065
     Dates: start: 20190717, end: 20190726
  57. NEORAL [Concomitant]
     Active Substance: CYCLOSPORINE
     Dosage: 250MG AFTER BREAKFAST/DINNER 50MGAFTER DINNER
     Route: 065
     Dates: start: 20190727, end: 20190730
  58. NEORAL [Concomitant]
     Active Substance: CYCLOSPORINE
     Dosage: 300 MILLIGRAM, BID
     Route: 065
     Dates: start: 20190731, end: 20190808
  59. NEORAL [Concomitant]
     Active Substance: CYCLOSPORINE
     Dosage: 150 MILLIGRAM, BID
     Route: 065
     Dates: start: 20190812, end: 20190813
  60. NEORAL [Concomitant]
     Active Substance: CYCLOSPORINE
     Dosage: 150 MILLIGRAM, BID
     Route: 065
     Dates: start: 20190816, end: 20200423
  61. NEORAL [Concomitant]
     Active Substance: CYCLOSPORINE
     Dosage: 100 MILLIGRAM, BID
     Route: 065
     Dates: start: 20200424, end: 20211209
  62. NEORAL [Concomitant]
     Active Substance: CYCLOSPORINE
     Dosage: 250 MILLIGRAM, BID
     Route: 065
     Dates: start: 20220210, end: 20220210
  63. NEORAL [Concomitant]
     Active Substance: CYCLOSPORINE
     Dosage: 125 MILLIGRAM, BID
     Route: 065
     Dates: start: 20220211, end: 20220216
  64. NEORAL [Concomitant]
     Active Substance: CYCLOSPORINE
     Dosage: 150 MILLIGRAM, BID
     Route: 065
     Dates: start: 20220218, end: 20220307
  65. NEORAL [Concomitant]
     Active Substance: CYCLOSPORINE
     Dosage: 300 MILLIGRAM, BID
     Route: 065
     Dates: start: 20220308, end: 20220317
  66. NEORAL [Concomitant]
     Active Substance: CYCLOSPORINE
     Dosage: 350MG AFTER BREAKFAST, 300MG AFTER DINNER
     Route: 065
     Dates: start: 20220318, end: 20220318
  67. NEORAL [Concomitant]
     Active Substance: CYCLOSPORINE
     Dosage: 950MG AFTER BREAKFAST/DINNER, 300MG AFTER BREAKFAST
     Route: 065
     Dates: start: 20220319, end: 20220323
  68. NEORAL [Concomitant]
     Active Substance: CYCLOSPORINE
     Dosage: 350MG AFTER BREAKFAST, 300MG AFTER DINNER
     Route: 065
     Dates: start: 20220324, end: 20220324
  69. NEORAL [Concomitant]
     Active Substance: CYCLOSPORINE
     Dosage: 175 MILLIGRAM, BID
     Route: 065
     Dates: start: 20220330, end: 20220414
  70. NEORAL [Concomitant]
     Active Substance: CYCLOSPORINE
     Dosage: 100 MILLIGRAM, BID
     Route: 065
     Dates: start: 20220415, end: 20220512
  71. NEORAL [Concomitant]
     Active Substance: CYCLOSPORINE
     Dosage: 150 MILLIGRAM, BID AFTER BREAKFAST/DINNER
     Route: 065
     Dates: start: 20190731, end: 20190808
  72. ELTROMBOPAG OLAMINE [Concomitant]
     Active Substance: ELTROMBOPAG OLAMINE
     Indication: Immune thrombocytopenia
     Dosage: 12.5 MILLIGRAM, QD
     Route: 065
     Dates: start: 20211126, end: 20220203
  73. ELTROMBOPAG OLAMINE [Concomitant]
     Active Substance: ELTROMBOPAG OLAMINE
     Dosage: 50 MILLIGRAM, QD
     Route: 065
     Dates: start: 20190717, end: 20190808
  74. ELTROMBOPAG OLAMINE [Concomitant]
     Active Substance: ELTROMBOPAG OLAMINE
     Dosage: 100 MILLIGRAM, QD
     Route: 065
     Dates: start: 20190809, end: 20190811
  75. ELTROMBOPAG OLAMINE [Concomitant]
     Active Substance: ELTROMBOPAG OLAMINE
     Dosage: 50 MILLIGRAM, QD
     Route: 065
     Dates: start: 20190812, end: 20190813
  76. ELTROMBOPAG OLAMINE [Concomitant]
     Active Substance: ELTROMBOPAG OLAMINE
     Dosage: 50 MILLIGRAM, QD
     Route: 065
     Dates: start: 20190816, end: 20190829
  77. ELTROMBOPAG OLAMINE [Concomitant]
     Active Substance: ELTROMBOPAG OLAMINE
     Dosage: 37.5 MILLIGRAM, QD
     Route: 065
     Dates: start: 20190830, end: 20190905
  78. ELTROMBOPAG OLAMINE [Concomitant]
     Active Substance: ELTROMBOPAG OLAMINE
     Dosage: 25 MILLIGRAM, QD
     Route: 065
     Dates: start: 20190906, end: 20190919
  79. ELTROMBOPAG OLAMINE [Concomitant]
     Active Substance: ELTROMBOPAG OLAMINE
     Dosage: 12.5 MILLIGRAM, QD
     Route: 065
     Dates: start: 20190920, end: 20190926
  80. ELTROMBOPAG OLAMINE [Concomitant]
     Active Substance: ELTROMBOPAG OLAMINE
     Dosage: 25 MILLIGRAM, QD
     Route: 065
     Dates: start: 20220204, end: 20220210
  81. VITAMINS [Concomitant]
     Active Substance: VITAMINS
     Indication: Product used for unknown indication
     Dosage: 600 MILLIGRAM, TID
     Route: 065
     Dates: start: 20201009, end: 20220216
  82. VITAMINS [Concomitant]
     Active Substance: VITAMINS
     Dosage: 600 MILLIGRAM, TID
     Route: 065
     Dates: start: 20220217, end: 20220307
  83. VITAMINS [Concomitant]
     Active Substance: VITAMINS
     Dosage: 1200 MILLIGRAM, TID
     Route: 065
     Dates: start: 20220308, end: 20220318
  84. VITAMINS [Concomitant]
     Active Substance: VITAMINS
     Dosage: 1800 MILLIGRAM, TID
     Route: 065
     Dates: start: 20220319, end: 20220323
  85. VITAMINS [Concomitant]
     Active Substance: VITAMINS
     Dosage: 1200 MILLIGRAM, TID
     Route: 065
     Dates: start: 20220324, end: 20220324
  86. VITAMINS [Concomitant]
     Active Substance: VITAMINS
     Dosage: 600 MILLIGRAM, TID
     Route: 065
     Dates: start: 20220330, end: 20220407
  87. POLARAMINE [Concomitant]
     Active Substance: DEXCHLORPHENIRAMINE MALEATE
     Indication: Product used for unknown indication
     Dosage: 1 AMPOULE
     Route: 041
     Dates: start: 20220113, end: 20220113
  88. POLARAMINE [Concomitant]
     Active Substance: DEXCHLORPHENIRAMINE MALEATE
     Dosage: UNK, Q2WK
     Route: 041
     Dates: start: 20220218, end: 20220304
  89. POLARAMINE [Concomitant]
     Active Substance: DEXCHLORPHENIRAMINE MALEATE
     Dosage: 1 AMPOULE
     Route: 041
     Dates: start: 20220308, end: 20220308
  90. POLARAMINE [Concomitant]
     Active Substance: DEXCHLORPHENIRAMINE MALEATE
     Dosage: 1 AMPOULE
     Route: 041
     Dates: start: 20220311, end: 20220311
  91. POLARAMINE [Concomitant]
     Active Substance: DEXCHLORPHENIRAMINE MALEATE
     Dosage: 1 AMPOULE
     Route: 041
     Dates: start: 20220318, end: 20220318
  92. POLARAMINE [Concomitant]
     Active Substance: DEXCHLORPHENIRAMINE MALEATE
     Dosage: 1 AMPOULE
     Route: 041
     Dates: start: 20220322, end: 20220322
  93. POLARAMINE [Concomitant]
     Active Substance: DEXCHLORPHENIRAMINE MALEATE
     Dosage: UNK UNK, QD
     Route: 041
     Dates: start: 20220325, end: 20220328
  94. POLARAMINE [Concomitant]
     Active Substance: DEXCHLORPHENIRAMINE MALEATE
     Dosage: UNK UNK, QD
     Route: 041
     Dates: start: 20220330, end: 20220402
  95. POLARAMINE [Concomitant]
     Active Substance: DEXCHLORPHENIRAMINE MALEATE
     Dosage: UNK UNK, QD
     Route: 041
     Dates: start: 20220404, end: 20220411
  96. POLARAMINE [Concomitant]
     Active Substance: DEXCHLORPHENIRAMINE MALEATE
     Dosage: UNK UNK, QD
     Route: 041
     Dates: start: 20220414, end: 20220423
  97. POLARAMINE [Concomitant]
     Active Substance: DEXCHLORPHENIRAMINE MALEATE
     Dosage: UNK UNK, QD
     Route: 041
     Dates: start: 20220425, end: 20220506
  98. POLARAMINE [Concomitant]
     Active Substance: DEXCHLORPHENIRAMINE MALEATE
     Dosage: 1 AMPOULE
     Route: 041
     Dates: start: 20220523, end: 20220523
  99. POLARAMINE [Concomitant]
     Active Substance: DEXCHLORPHENIRAMINE MALEATE
     Dosage: 1 AMPOULE
     Route: 041
     Dates: start: 20220527, end: 20220527
  100. POLARAMINE [Concomitant]
     Active Substance: DEXCHLORPHENIRAMINE MALEATE
     Dosage: 1 AMPOULE
     Route: 041
     Dates: start: 20220603, end: 20220603
  101. POLARAMINE [Concomitant]
     Active Substance: DEXCHLORPHENIRAMINE MALEATE
     Dosage: 1 AMPOULE
     Route: 041
     Dates: start: 20220610, end: 20220610
  102. AMOXICILLIN\CLARITHROMYCIN\ESOMEPRAZOLE [Concomitant]
     Active Substance: AMOXICILLIN\CLARITHROMYCIN\ESOMEPRAZOLE
     Indication: Product used for unknown indication
     Dosage: 20 MILLIGRAM, QD
     Route: 065
     Dates: start: 20190816, end: 20220307
  103. AMOXICILLIN\CLARITHROMYCIN\ESOMEPRAZOLE [Concomitant]
     Active Substance: AMOXICILLIN\CLARITHROMYCIN\ESOMEPRAZOLE
     Dosage: 20 MILLIGRAM, QD
     Route: 065
     Dates: start: 20190717, end: 20190808
  104. AMOXICILLIN\CLARITHROMYCIN\ESOMEPRAZOLE [Concomitant]
     Active Substance: AMOXICILLIN\CLARITHROMYCIN\ESOMEPRAZOLE
     Dosage: 40 MILLIGRAM, QD
     Route: 065
     Dates: start: 20190809, end: 20190811
  105. AMOXICILLIN\CLARITHROMYCIN\ESOMEPRAZOLE [Concomitant]
     Active Substance: AMOXICILLIN\CLARITHROMYCIN\ESOMEPRAZOLE
     Dosage: 20 MILLIGRAM, QD
     Route: 065
     Dates: start: 20190812, end: 20190813
  106. AMOXICILLIN\CLARITHROMYCIN\ESOMEPRAZOLE [Concomitant]
     Active Substance: AMOXICILLIN\CLARITHROMYCIN\ESOMEPRAZOLE
     Dosage: 40 MILLIGRAM, QD
     Route: 065
     Dates: start: 20220308, end: 20220318
  107. AMOXICILLIN\CLARITHROMYCIN\ESOMEPRAZOLE [Concomitant]
     Active Substance: AMOXICILLIN\CLARITHROMYCIN\ESOMEPRAZOLE
     Dosage: 60 MILLIGRAM, QD
     Route: 065
     Dates: start: 20220319, end: 20220323
  108. AMOXICILLIN\CLARITHROMYCIN\ESOMEPRAZOLE [Concomitant]
     Active Substance: AMOXICILLIN\CLARITHROMYCIN\ESOMEPRAZOLE
     Dosage: 40 MILLIGRAM, QD
     Route: 065
     Dates: start: 20220324, end: 20220324
  109. AMOXICILLIN\CLARITHROMYCIN\ESOMEPRAZOLE [Concomitant]
     Active Substance: AMOXICILLIN\CLARITHROMYCIN\ESOMEPRAZOLE
     Dosage: 20 MILLIGRAM, QD
     Route: 065
     Dates: start: 20220330, end: 20220509
  110. AMOXICILLIN\CLARITHROMYCIN\ESOMEPRAZOLE [Concomitant]
     Active Substance: AMOXICILLIN\CLARITHROMYCIN\ESOMEPRAZOLE
     Dosage: 40 MILLIGRAM, QD
     Route: 065
     Dates: start: 20220510, end: 20220517
  111. AMOXICILLIN\CLARITHROMYCIN\ESOMEPRAZOLE [Concomitant]
     Active Substance: AMOXICILLIN\CLARITHROMYCIN\ESOMEPRAZOLE
     Dosage: 20 MILLIGRAM, QD
     Route: 065
     Dates: start: 20220518, end: 20220526
  112. AMOXICILLIN\CLARITHROMYCIN\ESOMEPRAZOLE [Concomitant]
     Active Substance: AMOXICILLIN\CLARITHROMYCIN\ESOMEPRAZOLE
     Dosage: 20 MILLIGRAM, QD
     Route: 065
     Dates: start: 20220603, end: 20220616
  113. CARBAZOCHROME SULFONATE NA [Concomitant]
     Indication: Product used for unknown indication
     Dosage: 30 MILLIGRAM, TID
     Route: 065
     Dates: start: 20210806, end: 20220209
  114. CARBAZOCHROME SULFONATE NA [Concomitant]
     Dosage: 30 MILLIGRAM, TID
     Route: 065
     Dates: start: 20190718, end: 20190808
  115. CARBAZOCHROME SULFONATE NA [Concomitant]
     Dosage: 60 MILLIGRAM, TID
     Route: 065
     Dates: start: 20190809, end: 20190811
  116. CARBAZOCHROME SULFONATE NA [Concomitant]
     Dosage: 30 MILLIGRAM, TID
     Route: 065
     Dates: start: 20190812, end: 20190813
  117. CARBAZOCHROME SULFONATE NA [Concomitant]
     Dosage: 30 MILLIGRAM, TID
     Route: 065
     Dates: start: 20190816, end: 20190905
  118. CARBAZOCHROME SULFONATE NA [Concomitant]
     Dosage: 30 MILLIGRAM, TID
     Route: 065
     Dates: start: 20210305, end: 20210408
  119. CARBAZOCHROME SULFONATE NA [Concomitant]
     Dosage: 60 MILLIGRAM, TID
     Route: 065
     Dates: start: 20220210, end: 20220210
  120. CARBAZOCHROME SULFONATE NA [Concomitant]
     Dosage: 30 MILLIGRAM, TID
     Route: 065
     Dates: start: 20220211, end: 20220216
  121. CARBAZOCHROME SULFONATE NA [Concomitant]
     Dosage: 30 MILLIGRAM, TID
     Route: 065
     Dates: start: 20220218, end: 20220307
  122. CARBAZOCHROME SULFONATE NA [Concomitant]
     Dosage: 60 MILLIGRAM, TID
     Route: 065
     Dates: start: 20220308, end: 20220318
  123. CARBAZOCHROME SULFONATE NA [Concomitant]
     Dosage: 90 MILLIGRAM, TID
     Route: 065
     Dates: start: 20220319, end: 20220323
  124. CARBAZOCHROME SULFONATE NA [Concomitant]
     Dosage: 60 MILLIGRAM, TID
     Route: 065
     Dates: start: 20220324, end: 20220324
  125. CARBAZOCHROME SULFONATE NA [Concomitant]
     Dosage: 30 MILLIGRAM, TID
     Route: 065
     Dates: start: 20220507, end: 20220509
  126. CARBAZOCHROME SULFONATE NA [Concomitant]
     Dosage: 60 MILLIGRAM, TID
     Route: 065
     Dates: start: 20220510, end: 20220517
  127. CARBAZOCHROME SULFONATE NA [Concomitant]
     Dosage: 30 MILLIGRAM, TID
     Route: 065
     Dates: start: 20220518, end: 20220526
  128. CARBAZOCHROME SULFONATE NA [Concomitant]
     Dosage: 30 MILLIGRAM, TID
     Route: 065
     Dates: start: 20220603, end: 20220822
  129. CALONAL [Concomitant]
     Active Substance: ACETAMINOPHEN
     Indication: Product used for unknown indication
     Dosage: 400 MILLIGRAM
     Route: 048
     Dates: start: 20220113, end: 20220122
  130. CALONAL [Concomitant]
     Active Substance: ACETAMINOPHEN
     Dosage: 200 MILLIGRAM, BID
     Route: 048
     Dates: start: 20200822, end: 20200910
  131. CALONAL [Concomitant]
     Active Substance: ACETAMINOPHEN
     Dosage: 400 MILLIGRAM
     Route: 048
     Dates: start: 20210124, end: 20210127
  132. CALONAL [Concomitant]
     Active Substance: ACETAMINOPHEN
     Dosage: 400 MILLIGRAM
     Route: 048
     Dates: start: 20210604, end: 20210613
  133. CALONAL [Concomitant]
     Active Substance: ACETAMINOPHEN
     Dosage: 400 MILLIGRAM
     Route: 048
     Dates: start: 20210702, end: 20210711
  134. CALONAL [Concomitant]
     Active Substance: ACETAMINOPHEN
     Dosage: 400 MILLIGRAM
     Route: 048
     Dates: start: 20210806, end: 20210815
  135. CALONAL [Concomitant]
     Active Substance: ACETAMINOPHEN
     Dosage: 400 MILLIGRAM
     Route: 048
     Dates: start: 20210903, end: 20210912
  136. CALONAL [Concomitant]
     Active Substance: ACETAMINOPHEN
     Dosage: 400 MILLIGRAM
     Route: 048
     Dates: start: 20211015, end: 20211024
  137. CALONAL [Concomitant]
     Active Substance: ACETAMINOPHEN
     Dosage: 400 MILLIGRAM
     Route: 048
     Dates: start: 20211105, end: 20211114
  138. CALONAL [Concomitant]
     Active Substance: ACETAMINOPHEN
     Dosage: 400 MILLIGRAM
     Route: 048
     Dates: start: 20211126, end: 20211205
  139. CALONAL [Concomitant]
     Active Substance: ACETAMINOPHEN
     Dosage: 400 MILLIGRAM
     Route: 048
     Dates: start: 20211210, end: 20211219
  140. CALONAL [Concomitant]
     Active Substance: ACETAMINOPHEN
     Dosage: 400 MILLIGRAM
     Route: 048
     Dates: start: 20211224, end: 20220102
  141. CALONAL [Concomitant]
     Active Substance: ACETAMINOPHEN
     Dosage: 400 MILLIGRAM
     Route: 048
     Dates: start: 20220311, end: 20220311
  142. CALONAL [Concomitant]
     Active Substance: ACETAMINOPHEN
     Dosage: 400 MILLIGRAM
     Route: 048
     Dates: start: 20220329, end: 20220329
  143. CALONAL [Concomitant]
     Active Substance: ACETAMINOPHEN
     Dosage: 400 MILLIGRAM
     Route: 048
     Dates: start: 20220403, end: 20220404
  144. CALONAL [Concomitant]
     Active Substance: ACETAMINOPHEN
     Dosage: 400 MILLIGRAM
     Route: 048
     Dates: start: 20220405, end: 20220405
  145. CALONAL [Concomitant]
     Active Substance: ACETAMINOPHEN
     Dosage: 400 MILLIGRAM
     Route: 048
     Dates: start: 20220406, end: 20220411
  146. CALONAL [Concomitant]
     Active Substance: ACETAMINOPHEN
     Dosage: 400 MILLIGRAM
     Route: 048
     Dates: start: 20220412, end: 20220412
  147. CALONAL [Concomitant]
     Active Substance: ACETAMINOPHEN
     Dosage: 400 MILLIGRAM
     Route: 048
     Dates: start: 20220502, end: 20220511
  148. FELBINAC [Concomitant]
     Active Substance: FELBINAC
     Indication: Product used for unknown indication
     Dosage: UNK UNK, QWK
     Route: 065
     Dates: start: 20190920, end: 20190920
  149. FELBINAC [Concomitant]
     Active Substance: FELBINAC
     Dosage: UNK UNK, QWK
     Route: 065
     Dates: start: 20190906, end: 20190906
  150. ZOLPIDEM TARTRATE [Concomitant]
     Active Substance: ZOLPIDEM TARTRATE
     Indication: Product used for unknown indication
     Dosage: 10 MILLIGRAM
     Route: 065
     Dates: start: 20220317, end: 20220317
  151. ZOLPIDEM TARTRATE [Concomitant]
     Active Substance: ZOLPIDEM TARTRATE
     Dosage: 5 MILLIGRAM
     Dates: start: 20190719, end: 20190728
  152. ZOLPIDEM TARTRATE [Concomitant]
     Active Substance: ZOLPIDEM TARTRATE
     Dosage: 10 MILLIGRAM
     Route: 065
     Dates: start: 20220318, end: 20220318
  153. ZOLPIDEM TARTRATE [Concomitant]
     Active Substance: ZOLPIDEM TARTRATE
     Dosage: 5 MILLIGRAM, QD
     Route: 065
     Dates: start: 20220330, end: 20220414
  154. ZOLPIDEM TARTRATE [Concomitant]
     Active Substance: ZOLPIDEM TARTRATE
     Dosage: 5 MILLIGRAM, QD
     Route: 065
     Dates: start: 20220422, end: 20220509
  155. ZOLPIDEM TARTRATE [Concomitant]
     Active Substance: ZOLPIDEM TARTRATE
     Dosage: 10 MILLIGRAM, QD
     Route: 065
     Dates: start: 20220510, end: 20220517
  156. ZOLPIDEM TARTRATE [Concomitant]
     Active Substance: ZOLPIDEM TARTRATE
     Dosage: 5 MILLIGRAM, QD
     Route: 065
     Dates: start: 20220518, end: 20220526
  157. ZOLPIDEM TARTRATE [Concomitant]
     Active Substance: ZOLPIDEM TARTRATE
     Dosage: 5 MILLIGRAM, QD
     Route: 065
     Dates: start: 20220603
  158. CALCIUM CARBONATE\CHOLECALCIFEROL\MAGNESIUM CARBONATE [Concomitant]
     Active Substance: CALCIUM CARBONATE\CHOLECALCIFEROL\MAGNESIUM CARBONATE
     Indication: Product used for unknown indication
     Dosage: 2 DOSAGE FORM, QD AFTER BREAKFAST
     Route: 065
     Dates: start: 20190816, end: 20220307
  159. CALCIUM CARBONATE\CHOLECALCIFEROL\MAGNESIUM CARBONATE [Concomitant]
     Active Substance: CALCIUM CARBONATE\CHOLECALCIFEROL\MAGNESIUM CARBONATE
     Dosage: 2 DOSAGE FORM, QD
     Route: 065
     Dates: start: 20190717, end: 20190808
  160. CALCIUM CARBONATE\CHOLECALCIFEROL\MAGNESIUM CARBONATE [Concomitant]
     Active Substance: CALCIUM CARBONATE\CHOLECALCIFEROL\MAGNESIUM CARBONATE
     Dosage: 4 DOSAGE FORM, QD
     Route: 065
     Dates: start: 20190809, end: 20190811
  161. CALCIUM CARBONATE\CHOLECALCIFEROL\MAGNESIUM CARBONATE [Concomitant]
     Active Substance: CALCIUM CARBONATE\CHOLECALCIFEROL\MAGNESIUM CARBONATE
     Dosage: 2 DOSAGE FORM, QD
     Route: 065
     Dates: start: 20190812, end: 20190813
  162. CALCIUM CARBONATE\CHOLECALCIFEROL\MAGNESIUM CARBONATE [Concomitant]
     Active Substance: CALCIUM CARBONATE\CHOLECALCIFEROL\MAGNESIUM CARBONATE
     Dosage: 4 DOSAGE FORM, QD
     Route: 065
     Dates: start: 20220308, end: 20220318
  163. CALCIUM CARBONATE\CHOLECALCIFEROL\MAGNESIUM CARBONATE [Concomitant]
     Active Substance: CALCIUM CARBONATE\CHOLECALCIFEROL\MAGNESIUM CARBONATE
     Dosage: 6 DOSAGE FORM, QD
     Route: 065
     Dates: start: 20220319, end: 20220323
  164. CALCIUM CARBONATE\CHOLECALCIFEROL\MAGNESIUM CARBONATE [Concomitant]
     Active Substance: CALCIUM CARBONATE\CHOLECALCIFEROL\MAGNESIUM CARBONATE
     Dosage: 4 DOSAGE FORM, QD
     Route: 065
     Dates: start: 20220324, end: 20220324
  165. CALCIUM CARBONATE\CHOLECALCIFEROL\MAGNESIUM CARBONATE [Concomitant]
     Active Substance: CALCIUM CARBONATE\CHOLECALCIFEROL\MAGNESIUM CARBONATE
     Dosage: 2 DOSAGE FORM, QD
     Route: 065
     Dates: start: 20220330, end: 20220509
  166. CALCIUM CARBONATE\CHOLECALCIFEROL\MAGNESIUM CARBONATE [Concomitant]
     Active Substance: CALCIUM CARBONATE\CHOLECALCIFEROL\MAGNESIUM CARBONATE
     Dosage: 4 DOSAGE FORM, QD
     Route: 065
     Dates: start: 20220510, end: 20220517
  167. CALCIUM CARBONATE\CHOLECALCIFEROL\MAGNESIUM CARBONATE [Concomitant]
     Active Substance: CALCIUM CARBONATE\CHOLECALCIFEROL\MAGNESIUM CARBONATE
     Dosage: 2 DOSAGE FORM, QD
     Route: 065
     Dates: start: 20220518, end: 20220526
  168. CALCIUM CARBONATE\CHOLECALCIFEROL\MAGNESIUM CARBONATE [Concomitant]
     Active Substance: CALCIUM CARBONATE\CHOLECALCIFEROL\MAGNESIUM CARBONATE
     Dosage: 2 DOSAGE FORM, QD
     Route: 065
     Dates: start: 20200603, end: 20220822
  169. AMLODIPINE BESYLATE [Concomitant]
     Active Substance: AMLODIPINE BESYLATE
     Indication: Product used for unknown indication
     Dosage: 5 MILLIGRAM, QD AFTER BREAKFAST
     Route: 065
     Dates: start: 20220304, end: 20220310
  170. AMLODIPINE BESYLATE [Concomitant]
     Active Substance: AMLODIPINE BESYLATE
     Dosage: 5 MILLIGRAM, QD
     Route: 065
     Dates: start: 20190717, end: 20190808
  171. AMLODIPINE BESYLATE [Concomitant]
     Active Substance: AMLODIPINE BESYLATE
     Dosage: 10 MILLIGRAM, QD
     Route: 065
     Dates: start: 20190809, end: 20190811
  172. AMLODIPINE BESYLATE [Concomitant]
     Active Substance: AMLODIPINE BESYLATE
     Dosage: 5 MILLIGRAM, QD
     Route: 065
     Dates: start: 20190812, end: 20190813
  173. AMLODIPINE BESYLATE [Concomitant]
     Active Substance: AMLODIPINE BESYLATE
     Dosage: 5 MILLIGRAM, QD
     Route: 065
     Dates: start: 20190816, end: 20190829
  174. AMLODIPINE BESYLATE [Concomitant]
     Active Substance: AMLODIPINE BESYLATE
     Dosage: 2.5 MILLIGRAM, QD
     Route: 065
     Dates: start: 20190830, end: 20190919
  175. AMLODIPINE BESYLATE [Concomitant]
     Active Substance: AMLODIPINE BESYLATE
     Dosage: 5 MILLIGRAM, QD
     Route: 065
     Dates: start: 20220308, end: 20220318
  176. AMLODIPINE BESYLATE [Concomitant]
     Active Substance: AMLODIPINE BESYLATE
     Dosage: 10 MILLIGRAM, QD
     Route: 065
     Dates: start: 20220319, end: 20220323
  177. AMLODIPINE BESYLATE [Concomitant]
     Active Substance: AMLODIPINE BESYLATE
     Dosage: 5 MILLIGRAM, QD
     Route: 065
     Dates: start: 20220324, end: 20220324
  178. AMLODIPINE BESYLATE [Concomitant]
     Active Substance: AMLODIPINE BESYLATE
     Dosage: 5 MILLIGRAM, QD
     Route: 065
     Dates: start: 20220330, end: 20220421
  179. FUNGIZONE [Concomitant]
     Active Substance: AMPHOTERICIN B
     Indication: Product used for unknown indication
     Dosage: 1 MILLILITER, TID
     Route: 065
     Dates: start: 20220518, end: 20220602
  180. FUNGIZONE [Concomitant]
     Active Substance: AMPHOTERICIN B
     Dosage: UNK, TID
     Route: 065
     Dates: start: 20190802, end: 20190807
  181. FUNGIZONE [Concomitant]
     Active Substance: AMPHOTERICIN B
     Dosage: 1 MILLILITER, TID
     Route: 065
     Dates: start: 20190823, end: 20190906
  182. FUNGIZONE [Concomitant]
     Active Substance: AMPHOTERICIN B
     Dosage: 1 MILLILITER, TID
     Route: 065
     Dates: start: 20220607, end: 20220622
  183. MIYA-BM [Concomitant]
     Active Substance: CLOSTRIDIUM BUTYRICUM SPORES STRAIN M-55
     Indication: Product used for unknown indication
     Dosage: 2 GRAM, TID
     Route: 065
     Dates: start: 20190812, end: 20190813
  184. MIYA-BM [Concomitant]
     Active Substance: CLOSTRIDIUM BUTYRICUM SPORES STRAIN M-55
     Dosage: 2 GRAM, TID
     Route: 065
     Dates: start: 20190807, end: 20190808
  185. MIYA-BM [Concomitant]
     Active Substance: CLOSTRIDIUM BUTYRICUM SPORES STRAIN M-55
     Dosage: 4 GRAM, TID
     Route: 065
     Dates: start: 20190809, end: 20190811
  186. CEFCAPENE PIVOXIL HYDROCHLORIDE HYDRATE [Concomitant]
     Active Substance: CEFCAPENE PIVOXIL HYDROCHLORIDE HYDRATE
     Indication: Product used for unknown indication
     Dosage: 100 MILLIGRAM, TID AFTER EACH MEAL
     Route: 065
     Dates: start: 20190906, end: 20190912
  187. LOXOPROFEN [Concomitant]
     Active Substance: LOXOPROFEN
     Indication: Product used for unknown indication
     Dosage: 60 MILLIGRAM WHEN IN PAIN
     Route: 065
     Dates: start: 20211230, end: 20220112
  188. LOXOPROFEN [Concomitant]
     Active Substance: LOXOPROFEN
     Indication: Pain
     Dosage: 60 MILLIGRAM
     Route: 065
     Dates: start: 20191011, end: 20191024
  189. LOXOPROFEN [Concomitant]
     Active Substance: LOXOPROFEN
     Dosage: 60 MILLIGRAM
     Route: 065
     Dates: start: 20200110, end: 20200123
  190. LOXOPROFEN [Concomitant]
     Active Substance: LOXOPROFEN
     Dosage: 60 MILLIGRAM
     Route: 065
     Dates: start: 20200131, end: 20200213
  191. LOXOPROFEN [Concomitant]
     Active Substance: LOXOPROFEN
     Dosage: 60 MILLIGRAM
     Route: 065
     Dates: start: 20200228, end: 20200312
  192. LOXOPROFEN [Concomitant]
     Active Substance: LOXOPROFEN
     Dosage: 60 MILLIGRAM
     Route: 065
     Dates: start: 20200327, end: 20200409
  193. LOXOPROFEN [Concomitant]
     Active Substance: LOXOPROFEN
     Dosage: 60 MILLIGRAM
     Route: 065
     Dates: start: 20200424, end: 20200507
  194. LOXOPROFEN [Concomitant]
     Active Substance: LOXOPROFEN
     Dosage: 60 MILLIGRAM
     Route: 065
     Dates: start: 20200522, end: 20200604
  195. LOXOPROFEN [Concomitant]
     Active Substance: LOXOPROFEN
     Dosage: 60 MILLIGRAM
     Route: 065
     Dates: start: 20200619, end: 20200702
  196. LOXOPROFEN [Concomitant]
     Active Substance: LOXOPROFEN
     Dosage: 60 MILLIGRAM, BID
     Route: 065
     Dates: start: 20200717, end: 20200806
  197. LOXOPROFEN [Concomitant]
     Active Substance: LOXOPROFEN
     Dosage: 60 MILLIGRAM
     Route: 065
     Dates: start: 20200911, end: 20200930
  198. LOXOPROFEN [Concomitant]
     Active Substance: LOXOPROFEN
     Dosage: 60 MILLIGRAM
     Route: 065
     Dates: start: 20201009, end: 20201028
  199. LOXOPROFEN [Concomitant]
     Active Substance: LOXOPROFEN
     Dosage: 60 MILLIGRAM
     Route: 065
     Dates: start: 20201106, end: 20201125
  200. LOXOPROFEN [Concomitant]
     Active Substance: LOXOPROFEN
     Dosage: 60 MILLIGRAM
     Route: 065
     Dates: start: 20201218, end: 20210106
  201. LOXOPROFEN [Concomitant]
     Active Substance: LOXOPROFEN
     Dosage: 60 MILLIGRAM
     Route: 065
     Dates: start: 20210319, end: 20210428
  202. LOXOPROFEN [Concomitant]
     Active Substance: LOXOPROFEN
     Dosage: 60 MILLIGRAM
     Route: 065
     Dates: start: 20210507, end: 20210526
  203. LOXOPROFEN [Concomitant]
     Active Substance: LOXOPROFEN
     Dosage: 60 MILLIGRAM
     Route: 065
     Dates: start: 20210604, end: 20210623
  204. LOXOPROFEN [Concomitant]
     Active Substance: LOXOPROFEN
     Dosage: 60 MILLIGRAM
     Route: 065
     Dates: start: 20210702, end: 20210721
  205. LOXOPROFEN [Concomitant]
     Active Substance: LOXOPROFEN
     Dosage: 60 MILLIGRAM
     Route: 065
     Dates: start: 20210806, end: 20210825
  206. LOXOPROFEN [Concomitant]
     Active Substance: LOXOPROFEN
     Dosage: 60 MILLIGRAM
     Route: 065
     Dates: start: 20210903, end: 20210922
  207. LOXOPROFEN [Concomitant]
     Active Substance: LOXOPROFEN
     Dosage: 60 MILLIGRAM
     Route: 065
     Dates: start: 20211015, end: 20211103
  208. LOXOPROFEN [Concomitant]
     Active Substance: LOXOPROFEN
     Dosage: 60 MILLIGRAM
     Route: 065
     Dates: start: 20211105, end: 20211124
  209. LOXOPROFEN [Concomitant]
     Active Substance: LOXOPROFEN
     Dosage: 60 MILLIGRAM
     Route: 065
     Dates: start: 20211126, end: 20211209
  210. LOXOPROFEN [Concomitant]
     Active Substance: LOXOPROFEN
     Dosage: 120 MILLIGRAM
     Route: 065
     Dates: start: 20211210, end: 20211215
  211. LOXOPROFEN [Concomitant]
     Active Substance: LOXOPROFEN
     Dosage: 60 MILLIGRAM
     Route: 065
     Dates: start: 20211216, end: 20211223
  212. LOXOPROFEN [Concomitant]
     Active Substance: LOXOPROFEN
     Dosage: 120 MILLIGRAM
     Route: 065
     Dates: start: 20211224, end: 20211229
  213. REBAMIPIDE [Concomitant]
     Active Substance: REBAMIPIDE
     Indication: Product used for unknown indication
     Dosage: 100 MILLIGRAM, WHEN IN PAIN
     Route: 065
     Dates: start: 20211230, end: 20220201
  214. REBAMIPIDE [Concomitant]
     Active Substance: REBAMIPIDE
     Dosage: 100 MILLIGRAM
     Route: 065
     Dates: start: 20191011, end: 20191011
  215. REBAMIPIDE [Concomitant]
     Active Substance: REBAMIPIDE
     Dosage: 100 MILLIGRAM
     Route: 065
     Dates: start: 20200110, end: 20200123
  216. REBAMIPIDE [Concomitant]
     Active Substance: REBAMIPIDE
     Dosage: 100 MILLIGRAM
     Route: 065
     Dates: start: 20200131, end: 20200213
  217. REBAMIPIDE [Concomitant]
     Active Substance: REBAMIPIDE
     Dosage: 100 MILLIGRAM
     Route: 065
     Dates: start: 20200228, end: 20200312
  218. REBAMIPIDE [Concomitant]
     Active Substance: REBAMIPIDE
     Dosage: 100 MILLIGRAM
     Route: 065
     Dates: start: 20200327, end: 20200409
  219. REBAMIPIDE [Concomitant]
     Active Substance: REBAMIPIDE
     Dosage: 100 MILLIGRAM
     Route: 065
     Dates: start: 20200424, end: 20200507
  220. REBAMIPIDE [Concomitant]
     Active Substance: REBAMIPIDE
     Dosage: 100 MILLIGRAM
     Route: 065
     Dates: start: 20200522, end: 20200604
  221. REBAMIPIDE [Concomitant]
     Active Substance: REBAMIPIDE
     Dosage: 100 MILLIGRAM
     Route: 065
     Dates: start: 20200619, end: 20200702
  222. REBAMIPIDE [Concomitant]
     Active Substance: REBAMIPIDE
     Dosage: 100 MILLIGRAM, BID
     Route: 065
     Dates: start: 20200717, end: 20200806
  223. REBAMIPIDE [Concomitant]
     Active Substance: REBAMIPIDE
     Dosage: 100 MILLIGRAM
     Route: 065
     Dates: start: 20200911, end: 20200930
  224. REBAMIPIDE [Concomitant]
     Active Substance: REBAMIPIDE
     Dosage: 100 MILLIGRAM
     Route: 065
     Dates: start: 20201009, end: 20201028
  225. REBAMIPIDE [Concomitant]
     Active Substance: REBAMIPIDE
     Dosage: 100 MILLIGRAM
     Route: 065
     Dates: start: 20201106, end: 20201125
  226. REBAMIPIDE [Concomitant]
     Active Substance: REBAMIPIDE
     Dosage: 100 MILLIGRAM
     Route: 065
     Dates: start: 20201218, end: 20210106
  227. REBAMIPIDE [Concomitant]
     Active Substance: REBAMIPIDE
     Dosage: 100 MILLIGRAM
     Route: 065
     Dates: start: 20210319, end: 20210428
  228. REBAMIPIDE [Concomitant]
     Active Substance: REBAMIPIDE
     Dosage: 100 MILLIGRAM
     Route: 065
     Dates: start: 20210507, end: 20210526
  229. REBAMIPIDE [Concomitant]
     Active Substance: REBAMIPIDE
     Dosage: 100 MILLIGRAM
     Route: 065
     Dates: start: 20210604, end: 20210623
  230. REBAMIPIDE [Concomitant]
     Active Substance: REBAMIPIDE
     Dosage: 100 MILLIGRAM
     Route: 065
     Dates: start: 20210702, end: 20210721
  231. REBAMIPIDE [Concomitant]
     Active Substance: REBAMIPIDE
     Dosage: 100 MILLIGRAM
     Route: 065
     Dates: start: 20210806, end: 20210825
  232. REBAMIPIDE [Concomitant]
     Active Substance: REBAMIPIDE
     Dosage: 100 MILLIGRAM
     Route: 065
     Dates: start: 20210903, end: 20210922
  233. REBAMIPIDE [Concomitant]
     Active Substance: REBAMIPIDE
     Dosage: 100 MILLIGRAM
     Route: 065
     Dates: start: 20211015, end: 20211103
  234. REBAMIPIDE [Concomitant]
     Active Substance: REBAMIPIDE
     Dosage: 100 MILLIGRAM
     Route: 065
     Dates: start: 20211105, end: 20211124
  235. REBAMIPIDE [Concomitant]
     Active Substance: REBAMIPIDE
     Dosage: 100 MILLIGRAM
     Route: 065
     Dates: start: 20211126, end: 20211209
  236. REBAMIPIDE [Concomitant]
     Active Substance: REBAMIPIDE
     Dosage: 200 MILLIGRAM
     Route: 065
     Dates: start: 20211210, end: 20211215
  237. REBAMIPIDE [Concomitant]
     Active Substance: REBAMIPIDE
     Dosage: 100 MILLIGRAM
     Route: 065
     Dates: start: 20211216, end: 20211223
  238. REBAMIPIDE [Concomitant]
     Active Substance: REBAMIPIDE
     Dosage: 200 MILLIGRAM
     Route: 065
     Dates: start: 20211224, end: 20211229
  239. SODIUM FERROUS CITRATE [Concomitant]
     Active Substance: SODIUM FERROUS CITRATE
     Indication: Product used for unknown indication
     Dosage: 50 MILLIGRAM, QD AFTER DINNER
     Route: 065
     Dates: start: 20191011, end: 20200130
  240. FEBUXOSTAT [Concomitant]
     Active Substance: FEBUXOSTAT
     Indication: Product used for unknown indication
     Dosage: 10 MILLIGRAM, QD AFTER BREAKFAST
     Route: 065
     Dates: start: 20200110, end: 20220209
  241. FEBUXOSTAT [Concomitant]
     Active Substance: FEBUXOSTAT
     Dosage: 29 MILLIGRAM, QD
     Route: 065
     Dates: start: 20220210, end: 20220210
  242. FEBUXOSTAT [Concomitant]
     Active Substance: FEBUXOSTAT
     Dosage: 10 MILLIGRAM, QD
     Route: 065
     Dates: start: 20220211, end: 20220216
  243. FEBUXOSTAT [Concomitant]
     Active Substance: FEBUXOSTAT
     Dosage: 10 MILLIGRAM, QD
     Route: 065
     Dates: start: 20220218, end: 202202
  244. FEBUXOSTAT [Concomitant]
     Active Substance: FEBUXOSTAT
     Dosage: 10 MILLIGRAM, QD
     Route: 065
     Dates: start: 20220303, end: 20220307
  245. FEBUXOSTAT [Concomitant]
     Active Substance: FEBUXOSTAT
     Dosage: 20 MILLIGRAM, QD
     Route: 065
     Dates: start: 20220308, end: 20220318
  246. FEBUXOSTAT [Concomitant]
     Active Substance: FEBUXOSTAT
     Dosage: 30 MILLIGRAM, QD
     Route: 065
     Dates: start: 20220319, end: 20220323
  247. FEBUXOSTAT [Concomitant]
     Active Substance: FEBUXOSTAT
     Dosage: 20 MILLIGRAM, QD
     Route: 065
     Dates: start: 20220324, end: 20220324
  248. HERBALS [Concomitant]
     Active Substance: HERBALS
     Indication: Product used for unknown indication
     Dosage: 2.5 GRAM, TID AFTER EACH MEAL
     Route: 065
     Dates: start: 20200131, end: 20200206
  249. KETOPROFEN [Concomitant]
     Active Substance: KETOPROFEN
     Indication: Product used for unknown indication
     Dosage: 1 PIECE AT A TIME, ONCE A DAY
     Route: 065
     Dates: start: 20220113, end: 20220113
  250. KETOPROFEN [Concomitant]
     Active Substance: KETOPROFEN
     Dosage: UNK, Q4WK
     Route: 065
     Dates: start: 20200911, end: 20201106
  251. KETOPROFEN [Concomitant]
     Active Substance: KETOPROFEN
     Dosage: UNK, Q3WK
     Route: 065
     Dates: start: 20201218, end: 20210108
  252. KETOPROFEN [Concomitant]
     Active Substance: KETOPROFEN
     Dosage: 1 PIECE AT A TIME, ONCE A DAY
     Route: 065
     Dates: start: 20210205, end: 20210205
  253. KETOPROFEN [Concomitant]
     Active Substance: KETOPROFEN
     Dosage: UNK, Q3WK
     Route: 065
     Dates: start: 20210319, end: 20210409
  254. KETOPROFEN [Concomitant]
     Active Substance: KETOPROFEN
     Dosage: UNK, Q4WK
     Route: 065
     Dates: start: 20210604, end: 20210702
  255. KETOPROFEN [Concomitant]
     Active Substance: KETOPROFEN
     Dosage: UNK UNK, Q4WK
     Route: 065
     Dates: start: 20210806, end: 20210903
  256. KETOPROFEN [Concomitant]
     Active Substance: KETOPROFEN
     Dosage: UNK, Q3WK
     Route: 065
     Dates: start: 20211015, end: 20211126
  257. KETOPROFEN [Concomitant]
     Active Substance: KETOPROFEN
     Dosage: UNK, Q2WK
     Route: 065
     Dates: start: 20211210, end: 20211224
  258. CARTEOLOL HYDROCHLORIDE [Concomitant]
     Active Substance: CARTEOLOL HYDROCHLORIDE
     Indication: Product used for unknown indication
     Dosage: 10 MILLILITER, QD
     Route: 047
     Dates: start: 20220107, end: 20220107
  259. CARTEOLOL HYDROCHLORIDE [Concomitant]
     Active Substance: CARTEOLOL HYDROCHLORIDE
     Dosage: 2.5 MILLILITER, QD
     Route: 047
     Dates: start: 20210817, end: 20210817
  260. CARTEOLOL HYDROCHLORIDE [Concomitant]
     Active Substance: CARTEOLOL HYDROCHLORIDE
     Dosage: 10 MILLILITER, QD
     Route: 047
     Dates: start: 20210903, end: 20210903
  261. CARTEOLOL HYDROCHLORIDE [Concomitant]
     Active Substance: CARTEOLOL HYDROCHLORIDE
     Dosage: 7.5 MILLILITER, QD
     Route: 047
     Dates: start: 20220513, end: 20220513
  262. CARTEOLOL HYDROCHLORIDE [Concomitant]
     Active Substance: CARTEOLOL HYDROCHLORIDE
     Dosage: 10 MILLILITER, QD
     Route: 047
     Dates: start: 20220729, end: 20220729
  263. CYCLOSPORINE [Concomitant]
     Active Substance: CYCLOSPORINE
     Indication: Immune thrombocytopenia
     Dosage: 250 MILLIGRAM, Q2WK
     Route: 065
     Dates: start: 20211210, end: 20211224
  264. CYCLOSPORINE [Concomitant]
     Active Substance: CYCLOSPORINE
     Dosage: 300 MILLIGRAM
     Route: 065
     Dates: start: 20190726, end: 20190726
  265. CYCLOSPORINE [Concomitant]
     Active Substance: CYCLOSPORINE
     Dosage: 300 MILLIGRAM, QWK
     Route: 065
     Dates: start: 20190816, end: 20191025
  266. CYCLOSPORINE [Concomitant]
     Active Substance: CYCLOSPORINE
     Dosage: 300 MILLIGRAM, QWK
     Route: 065
     Dates: start: 20191108, end: 20191122
  267. CYCLOSPORINE [Concomitant]
     Active Substance: CYCLOSPORINE
     Dosage: 300 MILLIGRAM, Q2WK
     Route: 065
     Dates: start: 20191206, end: 20191220
  268. CYCLOSPORINE [Concomitant]
     Active Substance: CYCLOSPORINE
     Dosage: 300 MILLIGRAM, Q3WK
     Route: 065
     Dates: start: 20200110, end: 20200131
  269. CYCLOSPORINE [Concomitant]
     Active Substance: CYCLOSPORINE
     Dosage: 300 MILLIGRAM, Q4WK
     Route: 065
     Dates: start: 20200228, end: 20200327
  270. CYCLOSPORINE [Concomitant]
     Active Substance: CYCLOSPORINE
     Dosage: 200 MILLIGRAM, Q4WK
     Route: 065
     Dates: start: 20200424, end: 20201106
  271. CYCLOSPORINE [Concomitant]
     Active Substance: CYCLOSPORINE
     Dosage: 200 MILLIGRAM, Q4WK
     Route: 065
     Dates: start: 20201205, end: 20201218
  272. CYCLOSPORINE [Concomitant]
     Active Substance: CYCLOSPORINE
     Dosage: 200 MILLIGRAM, Q4WK
     Route: 065
     Dates: start: 20210108, end: 20210305
  273. CYCLOSPORINE [Concomitant]
     Active Substance: CYCLOSPORINE
     Dosage: 200 MILLIGRAM, Q4WK
     Route: 065
     Dates: start: 20210319, end: 20210319
  274. CYCLOSPORINE [Concomitant]
     Active Substance: CYCLOSPORINE
     Dosage: 200 MILLIGRAM, Q4WK
     Route: 065
     Dates: start: 20210409, end: 20210702
  275. CYCLOSPORINE [Concomitant]
     Active Substance: CYCLOSPORINE
     Dosage: 200 MILLIGRAM, Q4WK
     Route: 065
     Dates: start: 20210806, end: 20210903
  276. CYCLOSPORINE [Concomitant]
     Active Substance: CYCLOSPORINE
     Dosage: 200 MILLIGRAM, Q3WK
     Route: 065
     Dates: start: 20211015, end: 20211126
  277. CYCLOSPORINE [Concomitant]
     Active Substance: CYCLOSPORINE
     Dosage: 250 MILLIGRAM
     Route: 065
     Dates: start: 20220204, end: 20220204
  278. CYCLOSPORINE [Concomitant]
     Active Substance: CYCLOSPORINE
     Dosage: 300 MILLIGRAM, QWK
     Route: 065
     Dates: start: 20220218, end: 20220311
  279. CYCLOSPORINE [Concomitant]
     Active Substance: CYCLOSPORINE
     Dosage: 100 MILLIGRAM, BID
     Route: 065
     Dates: start: 20220510, end: 20220512
  280. CYCLOSPORINE [Concomitant]
     Active Substance: CYCLOSPORINE
     Dosage: 200 MILLIGRAM, BID
     Route: 065
     Dates: start: 20220513, end: 20220517
  281. CYCLOSPORINE [Concomitant]
     Active Substance: CYCLOSPORINE
     Dosage: 100 MILLIGRAM, BID
     Route: 065
     Dates: start: 20220518, end: 20220526
  282. CYCLOSPORINE [Concomitant]
     Active Substance: CYCLOSPORINE
     Dosage: 100 MILLIGRAM, BID
     Route: 065
     Dates: start: 20220603, end: 20220616
  283. CYCLOSPORINE [Concomitant]
     Active Substance: CYCLOSPORINE
     Dosage: 75 MILLIGRAM, BID
     Route: 065
     Dates: start: 20220617, end: 20220728
  284. CYCLOSPORINE [Concomitant]
     Active Substance: CYCLOSPORINE
     Dosage: 50 MILLIGRAM, BID
     Route: 065
     Dates: start: 20220729, end: 20220822
  285. LOXOPROFEN SODIUM [Concomitant]
     Active Substance: LOXOPROFEN SODIUM
     Indication: Pain
     Dosage: 60 MILLIGRAM
     Route: 065
     Dates: start: 20220113, end: 20220201

REACTIONS (1)
  - Myelofibrosis [Not Recovered/Not Resolved]

NARRATIVE: CASE EVENT DATE: 20220113
